FAERS Safety Report 21577035 (Version 1)
Quarter: 2022Q4

REPORT INFORMATION
  Report Type: Spontaneous
  Country: US (occurrence: None)
  Receive Date: 20221109
  Receipt Date: 20221109
  Transmission Date: 20230113
  Serious: Yes (Death)
  Sender: FDA-Public Use
  Company Number: None

PATIENT
  Sex: Female
  Weight: 83.91 kg

DRUGS (21)
  1. BRAFTOVI [Suspect]
     Active Substance: ENCORAFENIB
     Indication: Colon cancer
     Dosage: FREQUENCY : DAILY;?
     Route: 048
  2. ASPIRIN [Concomitant]
  3. CLOTRIMAZOLE [Concomitant]
  4. ELIQUIS [Concomitant]
  5. EZETIMIBE [Concomitant]
  6. JANUVIA [Concomitant]
  7. LANTUS [Concomitant]
  8. LASIX [Concomitant]
     Active Substance: FUROSEMIDE
  9. LIDOCAINE [Concomitant]
  10. PRILOCAINE [Concomitant]
  11. LIPITOR [Concomitant]
  12. LOSARTAN [Concomitant]
  13. METFORMIN [Concomitant]
     Active Substance: METFORMIN HYDROCHLORIDE
  14. METOPROLOL [Concomitant]
     Active Substance: METOPROLOL
  15. NORVASC [Concomitant]
     Active Substance: AMLODIPINE BESYLATE
  16. NOVOLOG [Concomitant]
  17. NYSTATIN [Concomitant]
  18. ONDANSETRON [Concomitant]
  19. PROTONIX [Concomitant]
  20. TRICOR [Concomitant]
  21. VITAMIN B12 [Concomitant]

REACTIONS (1)
  - Death [None]
